FAERS Safety Report 5376891-7 (Version None)
Quarter: 2007Q2

REPORT INFORMATION
  Report Type: 
  Country: None (occurrence: None)
  Receive Date: 20070628
  Receipt Date: 20070628
  Transmission Date: 20071010
  Serious: Yes (Hospitalization)
  Sender: FDA-Public Use
  Company Number: None

PATIENT
  Age: 40 Year
  Sex: Male
  Weight: 73 kg

DRUGS (1)
  1. DILANTIN [Suspect]
     Indication: CONVULSION
     Dosage: ORAL;100.0 MILLIGRAM  100MG TID X 4 DOSES
     Route: 048

REACTIONS (2)
  - RESPIRATORY DISTRESS [None]
  - SWELLING FACE [None]
